FAERS Safety Report 7184537-0 (Version None)
Quarter: 2010Q4

REPORT INFORMATION
  Report Type: 
  Country: None (occurrence: None)
  Receive Date: 20101123
  Receipt Date: 20100820
  Transmission Date: 20110411
  Serious: No
  Sender: FDA-Public Use
  Company Number: 017555

PATIENT
  Sex: Female
  Weight: 85.3 kg

DRUGS (6)
  1. CIMZIA [Suspect]
     Indication: CROHN'S DISEASE
     Dosage: (400 MG 1X/MONTH SUBCUTANEOUS)
     Route: 058
     Dates: start: 20090101
  2. ENTOCORT EC [Concomitant]
  3. MULTI-VITAMINS [Concomitant]
  4. INFED [Concomitant]
  5. PREMARIN [Concomitant]
  6. VITAMIN D [Concomitant]

REACTIONS (1)
  - FATIGUE [None]
